FAERS Safety Report 7103103-6 (Version None)
Quarter: 2010Q4

REPORT INFORMATION
  Report Type: 
  Country: None (occurrence: None)
  Receive Date: 20101115
  Receipt Date: 20080507
  Transmission Date: 20110411
  Serious: No
  Sender: FDA-Public Use
  Company Number: US-KINGPHARMUSA00001-K200800527

PATIENT
  Age: 61 Year
  Sex: Female

DRUGS (7)
  1. AVINZA [Suspect]
     Indication: PAIN
     Dosage: 30 MG, BID
     Route: 048
     Dates: start: 20080421, end: 20080505
  2. AVINZA [Suspect]
     Dosage: 60 MG, BID
     Route: 048
     Dates: start: 20080505, end: 20080501
  3. AVINZA [Suspect]
     Dosage: 60 MG, TID
     Route: 048
     Dates: start: 20080501
  4. BENICAR [Concomitant]
     Indication: HYPERTENSION
     Route: 048
  5. FORTAMET [Concomitant]
     Indication: DIABETES MELLITUS
     Route: 048
  6. MUSCLE RELAXANTS [Concomitant]
     Dosage: UNK, QHS
     Route: 048
  7. AMBIEN [Concomitant]
     Indication: INSOMNIA
     Dosage: UNK, PRN
     Route: 048

REACTIONS (2)
  - DRUG DIVERSION [None]
  - DRUG INEFFECTIVE [None]
